FAERS Safety Report 21799511 (Version 1)
Quarter: 2022Q4

REPORT INFORMATION
  Report Type: Spontaneous
  Country: US (occurrence: None)
  Receive Date: 20221229
  Receipt Date: 20221229
  Transmission Date: 20230112
  Serious: Yes (Hospitalization)
  Sender: FDA-Public Use
  Company Number: None

PATIENT
  Age: 63 Year
  Sex: Male

DRUGS (1)
  1. LENALIDOMIDE [Suspect]
     Active Substance: LENALIDOMIDE
     Indication: Plasma cell myeloma
     Dosage: 10MG QD ORAL?
     Route: 048
     Dates: start: 20220309

REACTIONS (7)
  - Diarrhoea [None]
  - Asthenia [None]
  - Nausea [None]
  - Therapy interrupted [None]
  - Hypophagia [None]
  - Abdominal pain [None]
  - Retching [None]

NARRATIVE: CASE EVENT DATE: 20221221
